FAERS Safety Report 20069727 (Version 1)
Quarter: 2021Q4

REPORT INFORMATION
  Report Type: Spontaneous
  Country: US (occurrence: None)
  Receive Date: 20211114
  Receipt Date: 20211114
  Transmission Date: 20220303
  Serious: Yes (Other)
  Sender: FDA-Public Use
  Company Number: None

PATIENT
  Age: 60 Year
  Sex: Female
  Weight: 53.1 kg

DRUGS (1)
  1. XEMBIFY [Suspect]
     Active Substance: HUMAN IMMUNOGLOBULIN G
     Indication: Immunodeficiency common variable
     Dosage: OTHER QUANTITY : 1 INFUSED;?OTHER FREQUENCY : EVERY 3-4 DAYS;?
     Route: 058
     Dates: start: 20210330, end: 20211104

REACTIONS (4)
  - Burning sensation [None]
  - Vomiting projectile [None]
  - Diarrhoea [None]
  - Pain in extremity [None]

NARRATIVE: CASE EVENT DATE: 20211104
